FAERS Safety Report 9462557 (Version 2)
Quarter: 2014Q3

REPORT INFORMATION
  Report Type: Spontaneous
  Country: US (occurrence: US)
  Receive Date: 20130816
  Receipt Date: 20140826
  Transmission Date: 20150326
  Serious: Yes (Death, Other)
  Sender: FDA-Public Use
  Company Number: US-009507513-2007-152786-NL

PATIENT
  Sex: Female
  Weight: 68 kg

DRUGS (3)
  1. NUVARING [Suspect]
     Active Substance: ETHINYL ESTRADIOL\ETONOGESTREL
     Indication: CONTRACEPTION
     Dosage: DOSE TEXT: 3 WEEKS INSERTED/ ONE WEEK OUT, CONTINUING: NA
     Route: 067
     Dates: start: 20050818, end: 20060502
  2. LOTREL [Concomitant]
     Active Substance: AMLODIPINE BESYLATE\BENAZEPRIL HYDROCHLORIDE
     Indication: BLOOD PRESSURE INCREASED
     Dosage: 5/20 1 CAPSULE QD
     Route: 048
  3. NIFEREX [Concomitant]
     Active Substance: IRON\POLYSACCHARIDES
     Dosage: 50 MG, QD

REACTIONS (7)
  - Wound [Unknown]
  - Myocarditis [Unknown]
  - Cardiac arrest [Not Recovered/Not Resolved]
  - Pulmonary embolism [Fatal]
  - Asthma [Unknown]
  - Syncope [Not Recovered/Not Resolved]
  - Nephrosclerosis [Unknown]

NARRATIVE: CASE EVENT DATE: 20060502
